FAERS Safety Report 21861500 (Version 1)
Quarter: 2023Q1

REPORT INFORMATION
  Report Type: Spontaneous
  Country: US (occurrence: US)
  Receive Date: 20230113
  Receipt Date: 20230113
  Transmission Date: 20230418
  Serious: Yes (Other)
  Sender: FDA-Public Use
  Company Number: US-IBSA PHARMA INC.-2022IBS000093

PATIENT

DRUGS (3)
  1. TIROSINT [Suspect]
     Active Substance: LEVOTHYROXINE SODIUM
     Indication: Hypothyroidism
     Dosage: 25 ?G, QD
     Route: 048
  2. TIROSINT [Suspect]
     Active Substance: LEVOTHYROXINE SODIUM
     Dosage: 13 ?G, QD
     Route: 048
  3. MULTIVITAMIN                       /00097801/ [Concomitant]
     Indication: Product used for unknown indication

REACTIONS (8)
  - Cardiac flutter [Not Recovered/Not Resolved]
  - Feeling cold [Not Recovered/Not Resolved]
  - Feeling hot [Unknown]
  - Anxiety [Unknown]
  - Arthralgia [Unknown]
  - Hyperhidrosis [Unknown]
  - Blood thyroid stimulating hormone increased [Unknown]
  - Wrong technique in product usage process [Unknown]
